FAERS Safety Report 4564612-7 (Version None)
Quarter: 2005Q1

REPORT INFORMATION
  Report Type: 
  Country: None (occurrence: None)
  Receive Date: 20050126
  Receipt Date: 20050114
  Transmission Date: 20050727
  Serious: Yes (Life-Threatening, Hospitalization)
  Sender: FDA-Public Use
  Company Number: 2004AP03007

PATIENT
  Age: 60 Year
  Sex: Female

DRUGS (2)
  1. IRESSA [Suspect]
     Indication: NON-SMALL CELL LUNG CANCER
     Dosage: 250 MG DAILY PO
     Route: 048
     Dates: start: 20040430, end: 20040604
  2. PIRITON [Concomitant]

REACTIONS (9)
  - COLLAPSE OF LUNG [None]
  - DEHYDRATION [None]
  - GENERAL PHYSICAL HEALTH DETERIORATION [None]
  - HYPOXIA [None]
  - LUNG CONSOLIDATION [None]
  - PLEURAL EFFUSION [None]
  - PNEUMONITIS [None]
  - PULMONARY OEDEMA [None]
  - URINE OUTPUT DECREASED [None]
